FAERS Safety Report 20339745 (Version 6)
Quarter: 2024Q1

REPORT INFORMATION
  Report Type: Report from Study
  Country: US (occurrence: US)
  Receive Date: 20220117
  Receipt Date: 20240319
  Transmission Date: 20240409
  Serious: No
  Sender: FDA-Public Use
  Company Number: US-NOVARTISTESTPH-NVSC2022US006958

PATIENT
  Age: 24 Year
  Sex: Female

DRUGS (2)
  1. ILARIS [Suspect]
     Active Substance: CANAKINUMAB
     Indication: Pyrexia
     Dosage: 300 MG, Q4W
     Route: 058
     Dates: start: 20191008
  2. ANAKINRA [Concomitant]
     Active Substance: ANAKINRA
     Indication: Product used for unknown indication
     Dosage: UNK,TWICE WITHIN THE 5 DAY PERIOD
     Route: 065

REACTIONS (11)
  - Illness [Unknown]
  - Cough [Unknown]
  - Pyrexia [Unknown]
  - Nasal congestion [Unknown]
  - Fatigue [Unknown]
  - Malaise [Unknown]
  - Nasopharyngitis [Unknown]
  - Chest discomfort [Unknown]
  - Thyroid mass [Unknown]
  - Nodule [Unknown]
  - Influenza like illness [Unknown]

NARRATIVE: CASE EVENT DATE: 20230503
